FAERS Safety Report 8520973-5 (Version None)
Quarter: 2012Q3

REPORT INFORMATION
  Report Type: 
  Country: None (occurrence: None)
  Receive Date: 20120719
  Receipt Date: 20120717
  Transmission Date: 20120928
  Serious: Yes (Death, Life-Threatening, Hospitalization)
  Sender: FDA-Public Use
  Company Number: BR-B.I. PHARMACEUTICALS,INC./RIDGEFIELD-2012-BR-00791BR

PATIENT
  Sex: Male
  Weight: 80 kg

DRUGS (3)
  1. SPIRIVA RESPIMAT [Suspect]
     Indication: RESPIRATORY DISORDER
     Dates: start: 20111201, end: 20120201
  2. LOSARTAN POTASSIUM [Concomitant]
  3. LASIX [Concomitant]

REACTIONS (1)
  - CARDIAC DISORDER [None]
